FAERS Safety Report 6711702-6 (Version None)
Quarter: 2010Q2

REPORT INFORMATION
  Report Type: 
  Country: None (occurrence: None)
  Receive Date: 20100505
  Receipt Date: 20100423
  Transmission Date: 20101027
  Serious: Yes (Other)
  Sender: FDA-Public Use
  Company Number: US-ROCHE-628970

PATIENT
  Age: 88 Year
  Sex: Male

DRUGS (2)
  1. BEVACIZUMAB [Suspect]
     Dosage: UNK
     Route: 031
  2. RANIBIZUMAB [Suspect]
     Dosage: UNK
     Route: 031

REACTIONS (1)
  - INTRAOCULAR PRESSURE INCREASED [None]
